FAERS Safety Report 13400245 (Version 4)
Quarter: 2017Q4

REPORT INFORMATION
  Report Type: Spontaneous
  Country: US (occurrence: US)
  Receive Date: 20170404
  Receipt Date: 20171219
  Transmission Date: 20180320
  Serious: No
  Sender: FDA-Public Use
  Company Number: US-PFIZER INC-2016411803

PATIENT
  Age: 73 Year
  Sex: Female
  Weight: 72.56 kg

DRUGS (3)
  1. XELJANZ XR [Suspect]
     Active Substance: TOFACITINIB CITRATE
     Dosage: 11 MG, 1X/DAY
     Route: 048
     Dates: end: 201711
  2. XELJANZ XR [Suspect]
     Active Substance: TOFACITINIB CITRATE
     Indication: RHEUMATOID ARTHRITIS
     Dosage: 11 MG, UNK
     Dates: end: 20160830
  3. SYMBICORT [Concomitant]
     Active Substance: BUDESONIDE\FORMOTEROL FUMARATE DIHYDRATE
     Indication: CHRONIC OBSTRUCTIVE PULMONARY DISEASE
     Dosage: 2 DF, 2X/DAY (BUDESONIDE 160MCG/FORMOTEROL FUMARATE 4.5 MCG)
     Dates: start: 2017

REACTIONS (1)
  - Wound [Unknown]

NARRATIVE: CASE EVENT DATE: 201608
